FAERS Safety Report 10084153 (Version 2)
Quarter: 2014Q2

REPORT INFORMATION
  Report Type: Spontaneous
  Country: IT (occurrence: IT)
  Receive Date: 20140417
  Receipt Date: 20140417
  Transmission Date: 20141212
  Serious: Yes (Hospitalization)
  Sender: FDA-Public Use
  Company Number: IT-ACTAVISPR-ACTA040450

PATIENT
  Age: 75 Year
  Sex: Male
  Weight: 50 kg

DRUGS (3)
  1. OXALIPLATIN (UNKNOWN) [Suspect]
     Indication: OESOPHAGEAL CARCINOMA
     Dosage: 100 MG, CYCLICAL
     Route: 042
     Dates: start: 20130228, end: 20130228
  2. TRIATEC                            /00116401/ [Concomitant]
     Indication: PRODUCT USED FOR UNKNOWN INDICATION
  3. CLOPIDOGREL [Concomitant]
     Indication: PRODUCT USED FOR UNKNOWN INDICATION

REACTIONS (1)
  - Infusion related reaction [Recovered/Resolved]
